FAERS Safety Report 18176267 (Version 2)
Quarter: 2020Q3

REPORT INFORMATION
  Report Type: Spontaneous
  Country: BR (occurrence: BR)
  Receive Date: 20200820
  Receipt Date: 20200902
  Transmission Date: 20201103
  Serious: Yes (Other)
  Sender: FDA-Public Use
  Company Number: BR-PFIZER INC-2020318776

PATIENT
  Sex: Female

DRUGS (1)
  1. CELEBRA [Suspect]
     Active Substance: CELECOXIB
     Indication: TENDONITIS
     Dosage: UNK, 2X/DAY (EVERY 12 HOURS)
     Dates: start: 20200812, end: 20200816

REACTIONS (13)
  - Mood altered [Not Recovered/Not Resolved]
  - Body temperature abnormal [Recovered/Resolved]
  - Dizziness [Recovering/Resolving]
  - Fluid retention [Not Recovered/Not Resolved]
  - Erythema [Unknown]
  - Blood glucose decreased [Not Recovered/Not Resolved]
  - Cold sweat [Recovered/Resolved]
  - Weight increased [Not Recovered/Not Resolved]
  - Peripheral swelling [Not Recovered/Not Resolved]
  - Diarrhoea [Not Recovered/Not Resolved]
  - Abdominal distension [Not Recovered/Not Resolved]
  - Blood pressure inadequately controlled [Not Recovered/Not Resolved]
  - Visual impairment [Recovering/Resolving]

NARRATIVE: CASE EVENT DATE: 20200814
